FAERS Safety Report 5135475-6 (Version None)
Quarter: 2006Q4

REPORT INFORMATION
  Report Type: 
  Country: None (occurrence: None)
  Receive Date: 20061026
  Receipt Date: 20060608
  Transmission Date: 20070319
  Serious: Yes (Hospitalization, Other)
  Sender: FDA-Public Use
  Company Number: PHHO2006CL09475

PATIENT
  Age: 37 Year
  Sex: Female
  Weight: 63 kg

DRUGS (3)
  1. EUTIROX [Concomitant]
     Indication: THYROID NEOPLASM
  2. RAVOTRIL [Concomitant]
     Indication: DEPRESSION
  3. ZELMAC / HTF 919A [Suspect]
     Indication: IRRITABLE BOWEL SYNDROME
     Dosage: HALF TABLET QD
     Route: 048
     Dates: start: 20060301, end: 20060502

REACTIONS (4)
  - CAESAREAN SECTION [None]
  - DIARRHOEA [None]
  - DRUG EXPOSURE DURING PREGNANCY [None]
  - UMBILICAL CORD ABNORMALITY [None]
